FAERS Safety Report 9491965 (Version 1)
Quarter: 2013Q3

REPORT INFORMATION
  Report Type: Report from Study
  Country: GB (occurrence: GB)
  Receive Date: 20130830
  Receipt Date: 20130830
  Transmission Date: 20140515
  Serious: Yes (Hospitalization)
  Sender: FDA-Public Use
  Company Number: GB-ABBOTT-13P-167-1138839-00

PATIENT
  Age: 34 Year
  Sex: Female
  Weight: 85 kg

DRUGS (9)
  1. HUMIRA [Suspect]
     Indication: PSORIASIS
     Route: 058
     Dates: start: 20120509, end: 20130327
  2. HUMIRA [Suspect]
     Route: 058
     Dates: start: 20130606
  3. DIANETTE [Concomitant]
     Indication: PRODUCT USED FOR UNKNOWN INDICATION
     Dates: start: 20081209
  4. LISINOPRIL [Concomitant]
     Indication: PRODUCT USED FOR UNKNOWN INDICATION
     Dates: start: 20011115
  5. METFORMIN [Concomitant]
     Indication: PRODUCT USED FOR UNKNOWN INDICATION
     Dates: start: 20090820
  6. GABAPENTIN [Concomitant]
     Indication: PRODUCT USED FOR UNKNOWN INDICATION
     Dates: start: 20120508, end: 20121207
  7. IBUPROFEN [Concomitant]
     Indication: PRODUCT USED FOR UNKNOWN INDICATION
     Dates: start: 20130115
  8. RIZATRIPTAN [Concomitant]
     Indication: PRODUCT USED FOR UNKNOWN INDICATION
     Dates: start: 20110513
  9. SUMATRIPTAN [Concomitant]
     Indication: PRODUCT USED FOR UNKNOWN INDICATION
     Dates: start: 20110513

REACTIONS (1)
  - Abdominal pain [Recovering/Resolving]
